FAERS Safety Report 6135573-4 (Version None)
Quarter: 2009Q1

REPORT INFORMATION
  Report Type: 
  Country: None (occurrence: None)
  Receive Date: 20090327
  Receipt Date: 20090317
  Transmission Date: 20090719
  Serious: Yes (Hospitalization)
  Sender: FDA-Public Use
  Company Number: PHHY2009AU09901

PATIENT
  Sex: Female

DRUGS (1)
  1. CLOZARIL [Suspect]
     Dosage: 425 MGS
     Dates: start: 19970729, end: 20090316

REACTIONS (4)
  - CHOLELITHIASIS [None]
  - HEPATIC CANCER METASTATIC [None]
  - HYPOTENSION [None]
  - PULSE PRESSURE DECREASED [None]
